FAERS Safety Report 6841684-8 (Version None)
Quarter: 2010Q3

REPORT INFORMATION
  Report Type: 
  Country: None (occurrence: None)
  Receive Date: 20100714
  Receipt Date: 20070712
  Transmission Date: 20110219
  Serious: No
  Sender: FDA-Public Use
  Company Number: US-PFIZER INC-2007059531

PATIENT
  Sex: Male
  Weight: 77.1 kg

DRUGS (1)
  1. CHANTIX [Suspect]
     Indication: SMOKING CESSATION THERAPY
     Dates: start: 20070101

REACTIONS (5)
  - AFFECTIVE DISORDER [None]
  - ANGER [None]
  - EMOTIONAL DISORDER [None]
  - SCREAMING [None]
  - WITHDRAWAL SYNDROME [None]
